FAERS Safety Report 8163767-5 (Version None)
Quarter: 2012Q1

REPORT INFORMATION
  Report Type: 
  Country: None (occurrence: None)
  Receive Date: 20120224
  Receipt Date: 20120218
  Transmission Date: 20120608
  Serious: Yes (Hospitalization, Other)
  Sender: FDA-Public Use
  Company Number: PHHY2012BR001265

PATIENT
  Sex: Female

DRUGS (1)
  1. FORMOTEROL FUMARATE [Suspect]
     Indication: TOBACCO USER

REACTIONS (4)
  - DRUG INEFFECTIVE [None]
  - PULMONARY EMBOLISM [None]
  - MEDICATION ERROR [None]
  - THROMBOSIS [None]
